FAERS Safety Report 13483274 (Version 1)
Quarter: 2017Q2

REPORT INFORMATION
  Report Type: Other
  Country: AT (occurrence: AT)
  Receive Date: 20170424
  Receipt Date: 20170424
  Transmission Date: 20170830
  Serious: Yes (Other)
  Sender: FDA-Public Use
  Company Number: AT-LABORATOIRE HRA PHARMA-1065807

PATIENT
  Age: 32 Year
  Sex: Female

DRUGS (1)
  1. ELLA [Suspect]
     Active Substance: ULIPRISTAL ACETATE
     Indication: CONTRACEPTION
     Dates: start: 20170108, end: 20170108

REACTIONS (4)
  - Uterine disorder [Recovered/Resolved with Sequelae]
  - Unintended pregnancy [Recovered/Resolved with Sequelae]
  - Abortion missed [Recovered/Resolved with Sequelae]
  - Drug ineffective [Recovered/Resolved with Sequelae]

NARRATIVE: CASE EVENT DATE: 20170108
